FAERS Safety Report 13614657 (Version 1)
Quarter: 2017Q2

REPORT INFORMATION
  Report Type: Spontaneous
  Country: US (occurrence: US)
  Receive Date: 20170605
  Receipt Date: 20170605
  Transmission Date: 20170830
  Serious: Yes (Other)
  Sender: FDA-Public Use
  Company Number: None

PATIENT
  Age: 57 Year
  Sex: Female
  Weight: 67.5 kg

DRUGS (1)
  1. VICKS NYQUIL COLD AND FLU [Suspect]
     Active Substance: ACETAMINOPHEN\DEXTROMETHORPHAN HYDROBROMIDE\DOXYLAMINE SUCCINATE
     Indication: VIRAL UPPER RESPIRATORY TRACT INFECTION
     Dosage: ?          QUANTITY:1 30 ML;?
     Route: 048
     Dates: start: 20170605, end: 20170605

REACTIONS (3)
  - Cough [None]
  - Rhinorrhoea [None]
  - Head discomfort [None]

NARRATIVE: CASE EVENT DATE: 20170605
